FAERS Safety Report 5595162-7 (Version None)
Quarter: 2008Q1

REPORT INFORMATION
  Report Type: 
  Country: None (occurrence: None)
  Receive Date: 20080117
  Receipt Date: 20070831
  Transmission Date: 20080703
  Serious: No
  Sender: FDA-Public Use
  Company Number: US-BAXTER-2007BH006955

PATIENT
  Age: 13 Year
  Sex: Female

DRUGS (1)
  1. DOPAMINE HCL IN 5% DEXTROSE [Suspect]
     Indication: DRUG USE FOR UNKNOWN INDICATION
     Dosage: DOSE UNIT:UNKNOWN
     Route: 042
     Dates: start: 20070707, end: 20070701

REACTIONS (2)
  - BLOOD PRESSURE DECREASED [None]
  - DEVICE MALFUNCTION [None]
